FAERS Safety Report 17318016 (Version 1)
Quarter: 2020Q1

REPORT INFORMATION
  Report Type: Spontaneous
  Country: US (occurrence: US)
  Receive Date: 20200124
  Receipt Date: 20200124
  Transmission Date: 20200409
  Serious: No
  Sender: FDA-Public Use
  Company Number: US-ANIPHARMA-2019-US-023921

PATIENT
  Age: 77 Year
  Sex: Female
  Weight: 59.42 kg

DRUGS (3)
  1. METOCLOPRAMIDE (NON-SPECIFIC) [Suspect]
     Active Substance: METOCLOPRAMIDE
     Indication: GASTROOESOPHAGEAL REFLUX DISEASE
     Dosage: 1/2 TO 1 TABLET BEFORE MEALS AND EVERY NIGHT AT BEDTIME
     Route: 048
  2. CLONIDINE. [Suspect]
     Active Substance: CLONIDINE
     Dosage: UNKNOWN
     Route: 065
  3. PROCARDIA XL [Suspect]
     Active Substance: NIFEDIPINE
     Dosage: ONE TABLET THREE TIMES A DAY
     Route: 048

REACTIONS (1)
  - Drug ineffective [Unknown]
